FAERS Safety Report 4663344-4 (Version None)
Quarter: 2005Q2

REPORT INFORMATION
  Report Type: 
  Country: None (occurrence: None)
  Receive Date: 20050517
  Receipt Date: 20050503
  Transmission Date: 20051028
  Serious: Yes (Hospitalization)
  Sender: FDA-Public Use
  Company Number: DE-AMGEN-UK130906

PATIENT
  Sex: Male

DRUGS (1)
  1. AMG 099073 [Suspect]
     Indication: HYPERPARATHYROIDISM SECONDARY
     Route: 048
     Dates: start: 20050222

REACTIONS (3)
  - ANGINA PECTORIS [None]
  - ANXIETY [None]
  - MAJOR DEPRESSION [None]
